FAERS Safety Report 23747322 (Version 2)
Quarter: 2024Q2

REPORT INFORMATION
  Report Type: Report from Study
  Country: US (occurrence: None)
  Receive Date: 20240416
  Receipt Date: 20240607
  Transmission Date: 20240715
  Serious: Yes (Hospitalization)
  Sender: FDA-Public Use
  Company Number: 2024A085372

PATIENT
  Sex: Female

DRUGS (1)
  1. FASENRA [Suspect]
     Active Substance: BENRALIZUMAB
     Indication: Asthma
     Dosage: EVERY 4 WEEKS FOR MONTHS 2 AND 3, THEN EVERY 8 WEEKS THEREAFTER30.0MG UNKNOWN
     Route: 058

REACTIONS (5)
  - Infection [Unknown]
  - Eosinophil count increased [Unknown]
  - Nasopharyngitis [Unknown]
  - Asthma [Unknown]
  - Intentional product use issue [Unknown]
